FAERS Safety Report 20230366 (Version 2)
Quarter: 2022Q1

REPORT INFORMATION
  Report Type: Report from Study
  Country: CO (occurrence: CO)
  Receive Date: 20211227
  Receipt Date: 20220115
  Transmission Date: 20220423
  Serious: Yes (Hospitalization, Other)
  Sender: FDA-Public Use
  Company Number: CO-ABBVIE-21K-036-4212389-00

PATIENT
  Age: 52 Year
  Sex: Female
  Weight: 74 kg

DRUGS (1)
  1. HUMIRA [Suspect]
     Active Substance: ADALIMUMAB
     Indication: Uveitis
     Route: 058
     Dates: start: 20200313, end: 20211112

REACTIONS (8)
  - Haemorrhoids [Unknown]
  - Melaena [Unknown]
  - Hypertension [Recovering/Resolving]
  - Hypertension [Unknown]
  - Hypertension [Recovering/Resolving]
  - Productive cough [Recovering/Resolving]
  - Discomfort [Recovering/Resolving]
  - Diarrhoea [Recovering/Resolving]

NARRATIVE: CASE EVENT DATE: 20210901
